FAERS Safety Report 23691637 (Version 1)
Quarter: 2024Q1

REPORT INFORMATION
  Report Type: Spontaneous
  Country: US (occurrence: None)
  Receive Date: 20240329
  Receipt Date: 20240329
  Transmission Date: 20240410
  Serious: No
  Sender: FDA-Public Use
  Company Number: None

PATIENT
  Age: 68 Year
  Sex: Male

DRUGS (11)
  1. AMBRISENTAN [Suspect]
     Active Substance: AMBRISENTAN
     Indication: Pulmonary arterial hypertension
     Dosage: FREQUENCY : DAILY;?
     Route: 048
     Dates: start: 20180115
  2. TADALAFIL [Concomitant]
  3. PREDNISONE [Concomitant]
     Active Substance: PREDNISONE
  4. FEBUXOSTAT [Concomitant]
     Active Substance: FEBUXOSTAT
  5. APIXABAN [Concomitant]
     Active Substance: APIXABAN
  6. ALLOPURINOL [Concomitant]
     Active Substance: ALLOPURINOL
  7. ATORVASTATIN [Concomitant]
  8. CALCITRIOL [Concomitant]
     Active Substance: CALCITRIOL
  9. FUROSEMIDE [Concomitant]
     Active Substance: FUROSEMIDE
  10. METOLAZONE [Concomitant]
  11. POTASSIUM CHLORIDE [Concomitant]
     Active Substance: POTASSIUM CHLORIDE

REACTIONS (1)
  - Hypervolaemia [None]

NARRATIVE: CASE EVENT DATE: 20240311
